FAERS Safety Report 6078163-4 (Version None)
Quarter: 2009Q1

REPORT INFORMATION
  Report Type: 
  Country: None (occurrence: None)
  Receive Date: 20090213
  Receipt Date: 20090212
  Transmission Date: 20090719
  Serious: Yes (Death, Hospitalization)
  Sender: FDA-Public Use
  Company Number: US-B.I. PHARMACEUTICALS,INC./RIDGEFIELD-2009-BP-01830BP

PATIENT
  Sex: Female

DRUGS (6)
  1. SPIRIVA [Suspect]
     Indication: CHRONIC OBSTRUCTIVE PULMONARY DISEASE
     Dosage: 18MCG
     Route: 055
     Dates: start: 20090118, end: 20090209
  2. SPIRIVA [Suspect]
     Indication: EMPHYSEMA
  3. LISINOPRIL [Concomitant]
     Indication: HYPERTENSION
     Dosage: 5MG
     Route: 048
     Dates: start: 20080101, end: 20090211
  4. ALDACTONE [Concomitant]
     Indication: FLUID RETENTION
     Dosage: 25MG
     Route: 048
     Dates: start: 20080101, end: 20090211
  5. OXYGEN [Concomitant]
     Indication: CHRONIC OBSTRUCTIVE PULMONARY DISEASE
     Route: 055
     Dates: end: 20090211
  6. PRILOSEC [Concomitant]
     Indication: GASTROOESOPHAGEAL REFLUX DISEASE
     Dosage: 25MG
     Route: 048
     Dates: start: 20080101, end: 20090211

REACTIONS (6)
  - ABDOMINAL PAIN UPPER [None]
  - COLITIS [None]
  - GASTRIC HAEMORRHAGE [None]
  - GASTROINTESTINAL NECROSIS [None]
  - HAEMORRHAGE [None]
  - VENOUS THROMBOSIS [None]
